FAERS Safety Report 6047886-5 (Version None)
Quarter: 2009Q1

REPORT INFORMATION
  Report Type: 
  Country: None (occurrence: None)
  Receive Date: 20090123
  Receipt Date: 20090119
  Transmission Date: 20090719
  Serious: Yes (Other)
  Sender: FDA-Public Use
  Company Number: US-ELI_LILLY_AND_COMPANY-US200901003031

PATIENT
  Age: 67 Year
  Sex: Male

DRUGS (2)
  1. ALIMTA [Suspect]
     Indication: PLEURAL NEOPLASM
     Route: 042
  2. VITAMINS NOS [Concomitant]
     Indication: VITAMIN SUPPLEMENTATION

REACTIONS (1)
  - CHEST DISCOMFORT [None]
